FAERS Safety Report 5079191-8 (Version None)
Quarter: 2006Q3

REPORT INFORMATION
  Report Type: 
  Country: None (occurrence: None)
  Receive Date: 20060808
  Receipt Date: 20060726
  Transmission Date: 20061208
  Serious: Yes (Hospitalization)
  Sender: FDA-Public Use
  Company Number: 2006089319

PATIENT
  Age: 68 Year
  Sex: Male
  Weight: 81.6475 kg

DRUGS (7)
  1. SUTENT [Suspect]
     Indication: METASTATIC RENAL CELL CARCINOMA
     Dosage: 50 MG (50 MG, 1 IN 1 D), ORAL
     Route: 048
     Dates: start: 20060309
  2. DOXAZOSIN (DOXAZOSIN) [Concomitant]
  3. ATORVASTATIN CALCIUM [Concomitant]
  4. LANSOPRAZOLE [Concomitant]
  5. METOPROLOL (METOPROLOL) [Concomitant]
  6. TICLOPIDINE (TICLOPIDINE) [Concomitant]
  7. NITROGLICERINA (GLYCERYL TRINITRATE) [Concomitant]

REACTIONS (1)
  - CHEST PAIN [None]
